FAERS Safety Report 10991061 (Version 2)
Quarter: 2015Q3

REPORT INFORMATION
  Report Type: Report from Study
  Country: BG (occurrence: BG)
  Receive Date: 20150406
  Receipt Date: 20150902
  Transmission Date: 20151125
  Serious: Yes (Hospitalization, Other)
  Sender: FDA-Public Use
  Company Number: BG-BAYER-2015-020974

PATIENT
  Age: 69 Year
  Sex: Male

DRUGS (3)
  1. NEXAVAR [Suspect]
     Active Substance: SORAFENIB
     Indication: HEPATOCELLULAR CARCINOMA
     Dosage: 400 MG, BID
     Dates: end: 201508
  2. NEXAVAR [Suspect]
     Active Substance: SORAFENIB
     Indication: HEPATOCELLULAR CARCINOMA
     Dosage: 400 MG, BID
     Dates: start: 20141217, end: 20150117
  3. NEXAVAR [Suspect]
     Active Substance: SORAFENIB
     Indication: HEPATOCELLULAR CARCINOMA
     Dosage: 400 MG, BID
     Dates: start: 20150123, end: 20150324

REACTIONS (6)
  - Diarrhoea haemorrhagic [None]
  - Rectal haemorrhage [None]
  - Irritable bowel syndrome [None]
  - Asthenia [None]
  - Haematochezia [None]
  - Liver ablation [Unknown]

NARRATIVE: CASE EVENT DATE: 20150123
